FAERS Safety Report 6335013-6 (Version None)
Quarter: 2009Q3

REPORT INFORMATION
  Report Type: 
  Country: None (occurrence: None)
  Receive Date: 20090831
  Receipt Date: 20090819
  Transmission Date: 20100115
  Serious: Yes (Hospitalization)
  Sender: FDA-Public Use
  Company Number: CA-NOVOPROD-289688

PATIENT
  Age: 55 Year
  Sex: Female
  Weight: 167 kg

DRUGS (2)
  1. VAGIFEM [Suspect]
     Indication: VULVOVAGINAL DRYNESS
     Dosage: 1 TAB, QD
     Dates: start: 20090504
  2. VAGIFEM [Suspect]
     Indication: SMEAR CERVIX ABNORMAL
     Dosage: 2 TAB PER WEEK
     Dates: end: 20090604

REACTIONS (3)
  - ABDOMINAL PAIN LOWER [None]
  - BACK PAIN [None]
  - VAGINAL HAEMORRHAGE [None]
